FAERS Safety Report 4717310-0 (Version None)
Quarter: 2005Q3

REPORT INFORMATION
  Report Type: 
  Country: None (occurrence: None)
  Receive Date: 20050715
  Receipt Date: 20050705
  Transmission Date: 20060218
  Serious: Yes (Hospitalization, Other)
  Sender: FDA-Public Use
  Company Number: 2005089417

PATIENT
  Age: 59 Year
  Sex: Female
  Weight: 48.5349 kg

DRUGS (14)
  1. CELEBREX [Suspect]
     Indication: ARTHRALGIA
     Dosage: ORAL
     Route: 048
     Dates: start: 19960101
  2. CELEBREX [Suspect]
     Indication: BACK PAIN
     Dosage: ORAL
     Route: 048
     Dates: start: 19960101
  3. CELEBREX [Suspect]
     Indication: OSTEOARTHRITIS
     Dosage: ORAL
     Route: 048
     Dates: start: 19960101
  4. ASPIRIN [Concomitant]
  5. TOPROL (METOPROLOL) [Concomitant]
  6. LOTREL [Concomitant]
  7. ZOLOFT [Concomitant]
  8. NEXIUM [Concomitant]
  9. AMBIEN [Concomitant]
  10. TEMAZEPAM [Concomitant]
  11. MULTIVITAMIN [Concomitant]
  12. ALL OTHER THERAPEUTIC PRODUCTS (ALL OTHER THERAPEUTIC PRODUCTS) [Concomitant]
  13. ALL OTHER THERAPEUTIC PRODUCTS (ALL OTHER THERAPEUTIC PRODUCTS) [Concomitant]
  14. CHONDROITIN/GLUCOSAMINE (CHONDROITIN, GLUCOSAMINE) [Concomitant]

REACTIONS (23)
  - ANAEMIA [None]
  - ARTHRALGIA [None]
  - BREAST CANCER [None]
  - BURSITIS [None]
  - CONDITION AGGRAVATED [None]
  - FUNGAL INFECTION [None]
  - INFLAMMATION [None]
  - LUMBAR RADICULOPATHY [None]
  - LUNG INFECTION [None]
  - LUNG NEOPLASM [None]
  - LYMPHADENOPATHY [None]
  - NODULE [None]
  - NON-SMALL CELL LUNG CANCER [None]
  - OESTROGEN RECEPTOR ASSAY POSITIVE [None]
  - OPPORTUNISTIC INFECTION [None]
  - OSTEOARTHRITIS [None]
  - OSTEOPOROSIS [None]
  - PERFORMANCE STATUS DECREASED [None]
  - PULMONARY MASS [None]
  - RADICULOPATHY [None]
  - SCAR [None]
  - SPINAL COMPRESSION FRACTURE [None]
  - SPINAL DEFORMITY [None]
